FAERS Safety Report 7118504-X (Version None)
Quarter: 2010Q4

REPORT INFORMATION
  Report Type: 
  Country: None (occurrence: None)
  Receive Date: 20101123
  Receipt Date: 20100330
  Transmission Date: 20110411
  Serious: No
  Sender: FDA-Public Use
  Company Number: US-MYLANLABS-2010S1002914

PATIENT
  Sex: Male

DRUGS (17)
  1. CLONAZEPAM [Suspect]
     Indication: NERVOUS SYSTEM DISORDER
     Route: 048
     Dates: start: 20090101, end: 20090101
  2. CLONAZEPAM [Suspect]
     Indication: MUSCLE DISORDER
     Route: 048
     Dates: start: 20090101, end: 20090101
  3. CLONAZEPAM [Suspect]
     Indication: NEUROPATHY PERIPHERAL
     Route: 048
     Dates: start: 20090101, end: 20090101
  4. CLONAZEPAM [Suspect]
     Indication: SLEEP DISORDER
     Route: 048
     Dates: start: 20090101, end: 20090101
  5. CLONAZEPAM [Suspect]
     Route: 048
     Dates: start: 20100215, end: 20100218
  6. CLONAZEPAM [Suspect]
     Route: 048
     Dates: start: 20100215, end: 20100218
  7. CLONAZEPAM [Suspect]
     Route: 048
     Dates: start: 20100215, end: 20100218
  8. CLONAZEPAM [Suspect]
     Route: 048
     Dates: start: 20100215, end: 20100218
  9. ROBAXIN [Concomitant]
  10. TRAMADOL HCL [Concomitant]
  11. DARVOCET [Concomitant]
  12. VOLTAREN [Concomitant]
  13. GABAPENTIN [Concomitant]
  14. INDERAL LA [Concomitant]
  15. CLONIDINE [Concomitant]
  16. DONNATAL [Concomitant]
  17. TYLENOL (CAPLET) [Concomitant]

REACTIONS (6)
  - BACK PAIN [None]
  - DRUG INEFFECTIVE [None]
  - LABORATORY TEST ABNORMAL [None]
  - MUSCLE DISORDER [None]
  - NERVOUSNESS [None]
  - TREMOR [None]
